FAERS Safety Report 6277955-6 (Version None)
Quarter: 2009Q3

REPORT INFORMATION
  Report Type: 
  Country: None (occurrence: None)
  Receive Date: 20090720
  Receipt Date: 20090707
  Transmission Date: 20100115
  Serious: Yes (Hospitalization)
  Sender: FDA-Public Use
  Company Number: 2009AP002835

PATIENT
  Sex: Male

DRUGS (2)
  1. OMEPRAZOLE [Suspect]
     Indication: PORTAL HYPERTENSIVE GASTROPATHY
  2. ANTIPSYCHOTICS (ANTIPSYCHOTICS) [Concomitant]

REACTIONS (2)
  - HYPOCALCAEMIA [None]
  - HYPOMAGNESAEMIA [None]
